FAERS Safety Report 8196622-5 (Version None)
Quarter: 2012Q1

REPORT INFORMATION
  Report Type: 
  Country: None (occurrence: None)
  Receive Date: 20120309
  Receipt Date: 20120305
  Transmission Date: 20120608
  Serious: Yes (Death)
  Sender: FDA-Public Use
  Company Number: JP-ASTRAZENECA-2012SE10761

PATIENT
  Sex: Male

DRUGS (13)
  1. ASPIRIN [Suspect]
     Indication: ACUTE CORONARY SYNDROME
     Route: 048
     Dates: start: 20110817
  2. PLAVIX [Suspect]
     Indication: ACUTE CORONARY SYNDROME
     Route: 048
     Dates: start: 20110816
  3. PLACEBO [Suspect]
     Indication: ACUTE CORONARY SYNDROME
     Route: 048
     Dates: start: 20110816
  4. SIGMART [Suspect]
     Indication: CARDIOVASCULAR EVENT PROPHYLAXIS
     Route: 048
     Dates: start: 20110816
  5. MICARDIS [Suspect]
     Indication: HYPERTENSION
     Route: 048
     Dates: start: 20110818
  6. ZANTAC [Suspect]
     Indication: GASTRITIS PROPHYLAXIS
     Route: 048
     Dates: start: 20110816
  7. LISINOPRIL [Suspect]
     Indication: HYPERTENSION
     Route: 048
     Dates: start: 20110829
  8. CARVEDILOL [Suspect]
     Indication: HYPERTENSION
     Route: 048
     Dates: start: 20110831
  9. DEXALTIN [Concomitant]
     Indication: STOMATITIS
     Route: 002
     Dates: start: 20110915
  10. RHYTHMY [Suspect]
     Indication: INSOMNIA
     Route: 048
     Dates: start: 20110821
  11. NICERGOLINE [Suspect]
     Indication: CEREBRAL CIRCULATORY FAILURE
     Route: 048
     Dates: start: 20110908
  12. LIPITOR [Suspect]
     Indication: HYPERLIPIDAEMIA
     Route: 048
     Dates: start: 20110816
  13. NITROGLYCERIN [Concomitant]
     Indication: ACUTE CORONARY SYNDROME
     Route: 060
     Dates: start: 20110816

REACTIONS (1)
  - CEREBRAL HAEMORRHAGE [None]
